FAERS Safety Report 8078704-1 (Version None)
Quarter: 2012Q1

REPORT INFORMATION
  Report Type: 
  Country: None (occurrence: None)
  Receive Date: 20120124
  Receipt Date: 20120111
  Transmission Date: 20120608
  Serious: Yes (Other)
  Sender: FDA-Public Use
  Company Number: 2012AP000088

PATIENT
  Age: 1 Hour
  Sex: Male

DRUGS (3)
  1. LAMOTRIGINE [Suspect]
     Dosage: 125 MG;TRPL
     Route: 064
  2. PNEUMOVAX II /01304001/ (PNEUMOCOCCAL POLYSACCHARIDE VACCINE [Suspect]
     Indication: IMMUNISATION
     Dosage: TRPL
     Route: 064
     Dates: start: 20110119, end: 20110119
  3. BUDESONIDE [Suspect]
     Dosage: 2 DF;TRPL
     Route: 064

REACTIONS (3)
  - CAESAREAN SECTION [None]
  - FOETAL DISTRESS SYNDROME [None]
  - MATERNAL DRUGS AFFECTING FOETUS [None]
